FAERS Safety Report 8676940 (Version 5)
Quarter: 2014Q2

REPORT INFORMATION
  Report Type: Report from Study
  Country: DE (occurrence: DE)
  Receive Date: 20120723
  Receipt Date: 20131002
  Transmission Date: 20141212
  Serious: Yes (Hospitalization, Other)
  Sender: FDA-Public Use
  Company Number: DE-009507513-2012SP006053

PATIENT
  Age: 74 Year
  Sex: Male
  Weight: 80 kg

DRUGS (6)
  1. SUGAMMADEX SODIUM [Suspect]
     Indication: NEUROMUSCULAR BLOCKADE REVERSAL
     Dosage: 3.2 ML, ONCE
     Route: 042
     Dates: start: 20120112
  2. IMBUN (IBUPROFEN) [Concomitant]
     Indication: PAIN
     Dosage: 500 MG, QID
     Route: 048
  3. PANTOZOL [Concomitant]
     Indication: PROPHYLAXIS
     Dosage: 40 MG, QD
     Route: 048
  4. AMLODIPINE [Concomitant]
     Indication: HYPERTONIA
     Dosage: 5 MG, QD
     Route: 048
  5. CLEXANE (ENOXAPARIN SODIUM) [Concomitant]
     Indication: THROMBOSIS PROPHYLAXIS
     Dosage: 40 MG, QD
     Route: 058
  6. TORSEMIDE [Concomitant]
     Indication: HYPERTONIA
     Dosage: 5 MG, QD
     Route: 048
     Dates: start: 20120112

REACTIONS (1)
  - Subcutaneous haematoma [Recovered/Resolved]
